FAERS Safety Report 4487247-3 (Version None)
Quarter: 2004Q4

REPORT INFORMATION
  Report Type: 
  Country: None (occurrence: None)
  Receive Date: 20041022
  Receipt Date: 20041011
  Transmission Date: 20050328
  Serious: Yes (Hospitalization, Other)
  Sender: FDA-Public Use
  Company Number: 239296

PATIENT
  Sex: Female
  Weight: 3.5 kg

DRUGS (3)
  1. ACRAPID PENFIL HM(GE) (ACTRAPID PENFILL HM [Suspect]
     Indication: DIABETES MELLITUS
     Dosage: 13 IU, QD, INTRAUTERINE
     Route: 015
     Dates: start: 20040320, end: 20040910
  2. PROTAPHANE HM PENFIL (INSULIN HUMAN) SUSPENSION FOR INJECTION, 100 IU/ [Concomitant]
  3. INOSINE (INOSINE) [Concomitant]

REACTIONS (10)
  - BRAIN HYPOXIA [None]
  - CEREBRAL ISCHAEMIA [None]
  - DIABETIC FOETOPATHY [None]
  - DRUG EXPOSURE DURING PREGNANCY [None]
  - GENERALISED OEDEMA [None]
  - HYPOGLYCAEMIA NEONATAL [None]
  - JAUNDICE NEONATAL [None]
  - NEONATAL DISORDER [None]
  - NERVOUS SYSTEM DISORDER [None]
  - PREMATURE BABY [None]
